FAERS Safety Report 9748376 (Version 2)
Quarter: 2013Q4

REPORT INFORMATION
  Report Type: Report from Study
  Country: BE (occurrence: BE)
  Receive Date: 20131212
  Receipt Date: 20131212
  Transmission Date: 20140711
  Serious: Yes (Hospitalization)
  Sender: FDA-Public Use
  Company Number: BE-JNJFOC-20130705441

PATIENT
  Age: 50 Year
  Sex: Male

DRUGS (3)
  1. BLINDED; GOLIMUMA [Suspect]
     Indication: SPONDYLITIS
     Dosage: TREATED FOR 8 WEEKS
     Route: 058
  2. PLACEBO [Suspect]
     Indication: SPONDYLITIS
     Dosage: TREATED FOR 8 WEEKS
     Route: 058
  3. SEROXAT [Concomitant]
     Indication: DEPRESSION
     Route: 048
     Dates: start: 20130410

REACTIONS (1)
  - Bronchitis [Recovered/Resolved]
